FAERS Safety Report 5808566-1 (Version None)
Quarter: 2008Q3

REPORT INFORMATION
  Report Type: 
  Country: None (occurrence: None)
  Receive Date: 20080702
  Receipt Date: 20071221
  Transmission Date: 20090109
  Serious: Yes (Other)
  Sender: FDA-Public Use
  Company Number: US-WYE-H01912608

PATIENT
  Age: 42 Year
  Sex: Female
  Weight: 81.72 kg

DRUGS (2)
  1. ADVIL [Suspect]
     Indication: HEADACHE
     Dosage: ^2 CAPSULES X 1^, ORAL
     Route: 048
     Dates: start: 20071219, end: 20071219
  2. PAXIL [Concomitant]

REACTIONS (4)
  - DYSPEPSIA [None]
  - HYPERHIDROSIS [None]
  - NAUSEA [None]
  - VOMITING [None]
